FAERS Safety Report 5732042-8 (Version None)
Quarter: 2008Q2

REPORT INFORMATION
  Report Type: 
  Country: None (occurrence: None)
  Receive Date: 20080506
  Receipt Date: 20080423
  Transmission Date: 20081010
  Serious: Yes (Other)
  Sender: FDA-Public Use
  Company Number: 2008036284

PATIENT
  Age: 31 Year
  Sex: Female
  Weight: 99 kg

DRUGS (1)
  1. FRAGMIN [Suspect]
     Indication: EMBOLISM VENOUS
     Dosage: 18000 I.U. (9000 I.U., 2 IN 24 HR)

REACTIONS (2)
  - DRUG EXPOSURE DURING PREGNANCY [None]
  - DRUG INEFFECTIVE [None]
